FAERS Safety Report 16420264 (Version 1)
Quarter: 2019Q2

REPORT INFORMATION
  Report Type: Spontaneous
  Country: US (occurrence: US)
  Receive Date: 20190612
  Receipt Date: 20190612
  Transmission Date: 20190711
  Serious: Yes (Other)
  Sender: FDA-Public Use
  Company Number: US-PFIZER INC-2019241865

PATIENT
  Age: 38 Year
  Sex: Male
  Weight: 79.37 kg

DRUGS (2)
  1. SUBOXONE [Concomitant]
     Active Substance: BUPRENORPHINE HYDROCHLORIDE\NALOXONE HYDROCHLORIDE
     Indication: PSYCHOSOCIAL SUPPORT
     Dosage: 16 MG, 2X/DAY
     Route: 048
  2. NICOTROL [Suspect]
     Active Substance: NICOTINE
     Indication: SMOKING CESSATION THERAPY
     Dosage: UNK

REACTIONS (3)
  - Drug dependence [Unknown]
  - Product quality issue [Unknown]
  - Drug ineffective [Unknown]
